FAERS Safety Report 13124640 (Version 1)
Quarter: 2017Q1

REPORT INFORMATION
  Report Type: Spontaneous
  Country: US (occurrence: US)
  Receive Date: 20170118
  Receipt Date: 20170118
  Transmission Date: 20170428
  Serious: Yes (Other)
  Sender: FDA-Public Use
  Company Number: US-APOTEX-2017AP005845

PATIENT
  Age: 13 Year
  Sex: Female

DRUGS (4)
  1. FLUTICASONE PROPIONATE. [Suspect]
     Active Substance: FLUTICASONE PROPIONATE
     Indication: ASTHMA
     Dosage: 440 ?G, BID
     Route: 055
  2. FLUTICASONE PROPIONATE. [Suspect]
     Active Substance: FLUTICASONE PROPIONATE
     Dosage: 220 ?G, BID
     Route: 055
  3. ALBUTEROL                          /00139501/ [Concomitant]
     Active Substance: ALBUTEROL
     Indication: PRODUCT USED FOR UNKNOWN INDICATION
     Route: 065
  4. CETIRIZINE [Concomitant]
     Active Substance: CETIRIZINE HYDROCHLORIDE
     Indication: PRODUCT USED FOR UNKNOWN INDICATION
     Route: 065

REACTIONS (2)
  - Adrenal suppression [Unknown]
  - Cushing^s syndrome [Unknown]
